FAERS Safety Report 16536554 (Version 2)
Quarter: 2019Q3

REPORT INFORMATION
  Report Type: Spontaneous
  Country: ES (occurrence: ES)
  Receive Date: 20190706
  Receipt Date: 20190711
  Transmission Date: 20191004
  Serious: Yes (Other)
  Sender: FDA-Public Use
  Company Number: ES-ABBVIE-19K-144-2844312-00

PATIENT
  Age: 55 Year
  Sex: Male
  Weight: 67 kg

DRUGS (1)
  1. MAVIRET [Suspect]
     Active Substance: GLECAPREVIR\PIBRENTASVIR
     Indication: CHRONIC HEPATITIS C
     Dosage: MAVIRET 100 MG / 40 MG FILM-COATED TABLETS, 84 TABLETS
     Route: 048
     Dates: start: 20190524

REACTIONS (2)
  - Deafness [Not Recovered/Not Resolved]
  - Vertigo [Recovered/Resolved]

NARRATIVE: CASE EVENT DATE: 20190612
